FAERS Safety Report 24720301 (Version 2)
Quarter: 2024Q4

REPORT INFORMATION
  Report Type: Spontaneous
  Country: US (occurrence: US)
  Receive Date: 20241211
  Receipt Date: 20241222
  Transmission Date: 20250115
  Serious: No
  Sender: DR REDDYS
  Company Number: US-DRL-USA-SPO/USA/24/0018075

PATIENT
  Age: 65 Year
  Sex: Female

DRUGS (2)
  1. ZENATANE [Suspect]
     Active Substance: ISOTRETINOIN
     Indication: Systemic lupus erythematosus
     Dosage: ZENTANE 40 MG CAPSULE
     Route: 065
     Dates: start: 20240701, end: 20241124
  2. ZENATANE [Suspect]
     Active Substance: ISOTRETINOIN
     Dosage: ZENTANE 30 MG CAPSULE
     Route: 065

REACTIONS (3)
  - Drug effective for unapproved indication [Unknown]
  - Rebound effect [Unknown]
  - Product use issue [Unknown]
